FAERS Safety Report 20469764 (Version 1)
Quarter: 2022Q1

REPORT INFORMATION
  Report Type: Spontaneous
  Country: US (occurrence: None)
  Receive Date: 20220213
  Receipt Date: 20220213
  Transmission Date: 20220423
  Serious: Yes (Other)
  Sender: FDA-Public Use
  Company Number: None

PATIENT
  Age: 41 Year
  Sex: Female
  Weight: 72 kg

DRUGS (2)
  1. PEPTO-BISMOL [Suspect]
     Active Substance: BISMUTH SUBSALICYLATE
     Indication: Nausea
     Dates: start: 20220208, end: 20220209
  2. PEPTO-BISMOL [Suspect]
     Active Substance: BISMUTH SUBSALICYLATE
     Indication: Diarrhoea

REACTIONS (4)
  - Rash [None]
  - Inflammation [None]
  - Musculoskeletal stiffness [None]
  - Fatigue [None]

NARRATIVE: CASE EVENT DATE: 20220210
